FAERS Safety Report 13652717 (Version 1)
Quarter: 2017Q2

REPORT INFORMATION
  Report Type: Spontaneous
  Country: US (occurrence: US)
  Receive Date: 20170614
  Receipt Date: 20170614
  Transmission Date: 20170830
  Serious: No
  Sender: FDA-Public Use
  Company Number: US-TEVA-777031USA

PATIENT
  Sex: Male

DRUGS (1)
  1. ARMODAFINIL. [Suspect]
     Active Substance: ARMODAFINIL
     Indication: POOR QUALITY SLEEP
     Route: 065

REACTIONS (2)
  - Drug ineffective [Unknown]
  - Adverse event [Unknown]
